FAERS Safety Report 8474527-X (Version None)
Quarter: 2012Q2

REPORT INFORMATION
  Report Type: 
  Country: None (occurrence: None)
  Receive Date: 20120628
  Receipt Date: 20120626
  Transmission Date: 20120825
  Serious: Yes (Life-Threatening)
  Sender: FDA-Public Use
  Company Number: FR-B.I. PHARMACEUTICALS,INC./RIDGEFIELD-2011-FF-00838FF

PATIENT
  Sex: Female
  Weight: 68 kg

DRUGS (8)
  1. LEVOTHYROXINE SODIUM [Concomitant]
  2. PRADAXA [Suspect]
     Indication: THROMBOSIS PROPHYLAXIS
     Dosage: 150 MG
     Route: 048
     Dates: start: 20110908, end: 20110909
  3. PRADAXA [Suspect]
     Indication: KNEE ARTHROPLASTY
  4. TRAMADOL HCL [Concomitant]
     Indication: PAIN
     Dosage: 300 MG
     Route: 042
     Dates: start: 20110910
  5. MORPHINE SULFATE [Concomitant]
     Dosage: 60 MG
     Route: 048
     Dates: start: 20110909, end: 20110911
  6. ACUPAN [Concomitant]
     Indication: PAIN
  7. ACETAMINOPHEN [Concomitant]
     Indication: PAIN
     Dosage: 3 G
     Route: 042
     Dates: start: 20110910
  8. ACETAMINOPHEN AND TRAMADOL HCL [Concomitant]
     Dosage: 150/1300
     Route: 048
     Dates: start: 20110910, end: 20110916

REACTIONS (1)
  - DEEP VEIN THROMBOSIS [None]
